FAERS Safety Report 7339706-3 (Version None)
Quarter: 2011Q1

REPORT INFORMATION
  Report Type: 
  Country: None (occurrence: None)
  Receive Date: 20110309
  Receipt Date: 20110301
  Transmission Date: 20110831
  Serious: Yes (Hospitalization, Other)
  Sender: FDA-Public Use
  Company Number: US-ELI_LILLY_AND_COMPANY-US201103000287

PATIENT
  Age: 74 Year
  Sex: Female

DRUGS (3)
  1. TRICOR [Concomitant]
     Indication: HYPERTRIGLYCERIDAEMIA
  2. BENICAR [Concomitant]
  3. BYETTA [Suspect]
     Indication: TYPE 2 DIABETES MELLITUS
     Dosage: 5 UG, 2/D
     Route: 058
     Dates: start: 20080101

REACTIONS (2)
  - DRUG DOSE OMISSION [None]
  - PANCREATITIS [None]
